FAERS Safety Report 9295824 (Version 1)
Quarter: 2013Q1

REPORT INFORMATION
  Report Type: Spontaneous
  Country: US (occurrence: None)
  Receive Date: 20121231
  Receipt Date: 20121231
  Transmission Date: 20140127
  Serious: Yes (Hospitalization)
  Sender: FDA-Public Use
  Company Number: RB-44920-2012

PATIENT
  Age: 27 Year
  Sex: Female

DRUGS (1)
  1. SUBOXONE, 8 MG, BECKIT RICKETT [Suspect]
     Indication: DRUG DEPENDENCE
     Route: 060
     Dates: start: 201203, end: 201207

REACTIONS (5)
  - Constipation [None]
  - Dehydration [None]
  - Underdose [None]
  - Wrong technique in drug usage process [None]
  - Drug withdrawal syndrome [None]
